FAERS Safety Report 21943598 (Version 1)
Quarter: 2023Q1

REPORT INFORMATION
  Report Type: Spontaneous
  Country: None (occurrence: US)
  Receive Date: 20230202
  Receipt Date: 20230202
  Transmission Date: 20230417
  Serious: No
  Sender: FDA-Public Use
  Company Number: US-SERB S.A.S.-2137390

PATIENT
  Age: 55 Year
  Sex: Male

DRUGS (4)
  1. CYANOKIT [Suspect]
     Active Substance: HYDROXOCOBALAMIN
     Indication: Cardiogenic shock
     Route: 065
  2. EPINEPHRINE [Concomitant]
     Active Substance: EPINEPHRINE
     Route: 041
  3. VASOPRESSIN [Concomitant]
     Active Substance: VASOPRESSIN
     Route: 041
  4. PHENYLEPHRINE [Concomitant]
     Active Substance: PHENYLEPHRINE HYDROCHLORIDE
     Route: 041

REACTIONS (2)
  - Product use in unapproved indication [Recovered/Resolved]
  - Device alarm issue [Recovered/Resolved]
